FAERS Safety Report 7787990-4 (Version None)
Quarter: 2011Q3

REPORT INFORMATION
  Report Type: 
  Country: None (occurrence: None)
  Receive Date: 20110930
  Receipt Date: 20110927
  Transmission Date: 20111222
  Serious: No
  Sender: FDA-Public Use
  Company Number: US-BIOGENIDEC-2011BI037091

PATIENT
  Age: 31 Year
  Sex: Female

DRUGS (1)
  1. TYSABRI [Suspect]
     Indication: MULTIPLE SCLEROSIS
     Route: 042
     Dates: start: 20110511

REACTIONS (6)
  - CHEST PAIN [None]
  - APHASIA [None]
  - MUSCULAR WEAKNESS [None]
  - DIZZINESS [None]
  - FATIGUE [None]
  - SINUSITIS [None]
